FAERS Safety Report 9127144 (Version 2)
Quarter: 2013Q1

REPORT INFORMATION
  Report Type: Spontaneous
  Country: US (occurrence: US)
  Receive Date: 20130228
  Receipt Date: 20130313
  Transmission Date: 20140127
  Serious: No
  Sender: FDA-Public Use
  Company Number: US-VERTEX PHARMACEUTICALS INC.-2013-002787

PATIENT
  Age: 53 Year
  Sex: Male
  Weight: 80 kg

DRUGS (4)
  1. INCIVEK [Suspect]
     Indication: HEPATITIS C
     Dosage: 750 MG, TID
     Route: 048
     Dates: start: 20130111
  2. PEGASYS [Suspect]
     Indication: HEPATITIS C
     Dosage: 180 ?G, QW
     Route: 058
     Dates: start: 20130111
  3. RIBAVIRIN [Suspect]
     Indication: HEPATITIS C
     Dosage: 600 MG, BID
     Route: 048
     Dates: start: 20130111
  4. RIBAVIRIN [Suspect]
     Dosage: 400 MG, BID
     Route: 048

REACTIONS (3)
  - Rash papular [Not Recovered/Not Resolved]
  - Anaemia [Not Recovered/Not Resolved]
  - Pruritus [Unknown]
